FAERS Safety Report 9632883 (Version 2)
Quarter: 2013Q4

REPORT INFORMATION
  Report Type: Spontaneous
  Country: US (occurrence: US)
  Receive Date: 20131018
  Receipt Date: 20131018
  Transmission Date: 20140711
  Serious: Yes (Hospitalization)
  Sender: FDA-Public Use
  Company Number: US-TMC-CABO-13003313

PATIENT
  Age: 76 Year
  Sex: Male

DRUGS (2)
  1. COMETRIQ [Suspect]
     Indication: PROSTATE CANCER
     Dosage: 140 MG, QD
     Route: 048
     Dates: start: 20130813, end: 20130904
  2. COMETRIQ [Suspect]
     Indication: METASTASIS
     Dosage: UNK

REACTIONS (5)
  - Dizziness [Recovering/Resolving]
  - Abasia [Recovering/Resolving]
  - Deafness [Recovering/Resolving]
  - Vomiting [Recovering/Resolving]
  - Nausea [Recovering/Resolving]
